FAERS Safety Report 6550065-6 (Version None)
Quarter: 2010Q1

REPORT INFORMATION
  Report Type: 
  Country: None (occurrence: None)
  Receive Date: 20100119
  Receipt Date: 20100105
  Transmission Date: 20100710
  Serious: Yes (Other)
  Sender: FDA-Public Use
  Company Number: AE 2010-002

PATIENT
  Age: 43 Year
  Sex: Male

DRUGS (3)
  1. CLOZAPINE [Suspect]
     Indication: BIPOLAR DISORDER
     Dosage: 350MG DAILY PO
     Route: 048
  2. LAMOTRIGINE [Suspect]
     Indication: BIPOLAR DISORDER
     Dosage: 50MG DAILY PO
     Route: 048
  3. LORAZEPAM [Concomitant]

REACTIONS (7)
  - BODY TEMPERATURE INCREASED [None]
  - DEPRESSION [None]
  - DISORIENTATION [None]
  - DIZZINESS [None]
  - DRUG ERUPTION [None]
  - DRUG TOXICITY [None]
  - UPPER RESPIRATORY TRACT INFECTION [None]
